FAERS Safety Report 4775430-9 (Version None)
Quarter: 2005Q3

REPORT INFORMATION
  Report Type: 
  Country: None (occurrence: None)
  Receive Date: 20050921
  Receipt Date: 20050921
  Transmission Date: 20060218
  Serious: Yes (Life-Threatening, Hospitalization)
  Sender: FDA-Public Use
  Company Number: None

PATIENT
  Sex: Male

DRUGS (4)
  1. CLOZAPINE [Suspect]
     Indication: SCHIZOPHRENIA
     Dosage: 100 MG AT 1 PM, 400 MG PO
     Route: 048
     Dates: start: 20050315, end: 20050601
  2. QUETIAPINE FUMARATE [Concomitant]
  3. LORAZEPAM [Concomitant]
  4. DEMECLOCYLINE [Concomitant]

REACTIONS (1)
  - LEUKOPENIA [None]
